FAERS Safety Report 5940703-0 (Version None)
Quarter: 2008Q4

REPORT INFORMATION
  Report Type: 
  Country: None (occurrence: None)
  Receive Date: 20081104
  Receipt Date: 20081031
  Transmission Date: 20090506
  Serious: Yes (Other)
  Sender: FDA-Public Use
  Company Number: US-ASTRAZENECA-2008UW24444

PATIENT
  Age: 79 Year
  Sex: Female

DRUGS (5)
  1. ARIMIDEX [Suspect]
     Route: 048
     Dates: start: 20051101
  2. PRILOSEC [Concomitant]
  3. PREDNISONE TAB [Concomitant]
  4. TRIAMTERENE [Concomitant]
  5. MULTI-VITAMIN [Concomitant]

REACTIONS (2)
  - POLYARTHRITIS [None]
  - POLYMYALGIA RHEUMATICA [None]
